FAERS Safety Report 9390909 (Version 1)
Quarter: 2013Q3

REPORT INFORMATION
  Report Type: Spontaneous
  Country: US (occurrence: US)
  Receive Date: 20130709
  Receipt Date: 20130709
  Transmission Date: 20140515
  Serious: No
  Sender: FDA-Public Use
  Company Number: US-PFIZER INC-2013198449

PATIENT
  Sex: Female

DRUGS (3)
  1. BENZATHINE BENZYLPENICILLIN [Suspect]
     Dosage: UNK
  2. CLINDAMYCIN PHOSPHATE [Suspect]
     Dosage: UNK
  3. FENTANYL [Suspect]
     Dosage: UNK

REACTIONS (1)
  - Rash [Unknown]
